FAERS Safety Report 13833199 (Version 1)
Quarter: 2017Q3

REPORT INFORMATION
  Report Type: Spontaneous
  Country: US (occurrence: US)
  Receive Date: 20170803
  Receipt Date: 20170803
  Transmission Date: 20171127
  Serious: Yes (Disabling)
  Sender: FDA-Public Use
  Company Number: None

PATIENT
  Sex: Male
  Weight: 83.25 kg

DRUGS (3)
  1. OMEGA3 [Concomitant]
  2. ZETIA [Suspect]
     Active Substance: EZETIMIBE
     Indication: BLOOD CHOLESTEROL ABNORMAL
     Dosage: ?          QUANTITY:90 TABLET(S);?
     Route: 048
     Dates: start: 20130808, end: 20170724
  3. MILK THISTLE [Concomitant]
     Active Substance: MILK THISTLE

REACTIONS (4)
  - Hepatic steatosis [None]
  - Condition aggravated [None]
  - Therapy cessation [None]
  - Abdominal pain [None]

NARRATIVE: CASE EVENT DATE: 20170206
